FAERS Safety Report 11797215 (Version 3)
Quarter: 2017Q2

REPORT INFORMATION
  Report Type: Spontaneous
  Country: US (occurrence: US)
  Receive Date: 20151203
  Receipt Date: 20170508
  Transmission Date: 20170829
  Serious: Yes (Hospitalization)
  Sender: FDA-Public Use
  Company Number: US-BAYER-2015-480821

PATIENT
  Age: 27 Year
  Sex: Female
  Weight: 92.97 kg

DRUGS (1)
  1. MIRENA [Suspect]
     Active Substance: LEVONORGESTREL
     Indication: CONTRACEPTION
     Dosage: 20 MCG/24HR, CONT
     Route: 015
     Dates: start: 200804, end: 20120501

REACTIONS (5)
  - Device difficult to use [None]
  - Anxiety [Not Recovered/Not Resolved]
  - Pelvic pain [None]
  - Depression [Not Recovered/Not Resolved]
  - Embedded device [None]

NARRATIVE: CASE EVENT DATE: 201205
